FAERS Safety Report 22365423 (Version 1)
Quarter: 2023Q2

REPORT INFORMATION
  Report Type: Spontaneous
  Country: US (occurrence: US)
  Receive Date: 20230525
  Receipt Date: 20230525
  Transmission Date: 20230721
  Serious: No
  Sender: FDA-Public Use
  Company Number: US-KVK-TECH, INC-20230300051

PATIENT

DRUGS (4)
  1. METHYLPHENIDATE HYDROCHLORIDE [Suspect]
     Active Substance: METHYLPHENIDATE HYDROCHLORIDE
     Indication: Narcolepsy
     Dosage: 5 MILLIGRAM, BID (MAXIMUM TWICE A DAY, ONLY TAKEN IN AM))
     Route: 065
     Dates: start: 202303, end: 202303
  2. METHYLPHENIDATE HYDROCHLORIDE [Suspect]
     Active Substance: METHYLPHENIDATE HYDROCHLORIDE
     Indication: Attention deficit hyperactivity disorder
     Dosage: 5 MILLIGRAM, PRN/INTERMITTENT (MAXIMUM TWICE A DAY, ONLY TAKEN IN AM))
     Route: 065
     Dates: start: 2023, end: 202303
  3. RITALIN [Suspect]
     Active Substance: METHYLPHENIDATE HYDROCHLORIDE
     Indication: Narcolepsy
     Dosage: 5 MILLIGRAM, UNKNOWN
     Route: 065
  4. RITALIN [Suspect]
     Active Substance: METHYLPHENIDATE HYDROCHLORIDE
     Indication: Attention deficit hyperactivity disorder

REACTIONS (14)
  - Anxiety [Unknown]
  - Fatigue [Unknown]
  - Asthenia [Unknown]
  - Feeling abnormal [Unknown]
  - Restlessness [Unknown]
  - Cold sweat [Unknown]
  - Panic attack [Unknown]
  - Tremor [Unknown]
  - Anger [Unknown]
  - Chest discomfort [Unknown]
  - Palpitations [Unknown]
  - Dizziness [Unknown]
  - Hypertension [Unknown]
  - Nausea [Unknown]

NARRATIVE: CASE EVENT DATE: 20230301
